FAERS Safety Report 5342795-9 (Version None)
Quarter: 2007Q2

REPORT INFORMATION
  Report Type: 
  Country: None (occurrence: None)
  Receive Date: 20070601
  Receipt Date: 20070522
  Transmission Date: 20071010
  Serious: Yes (Hospitalization)
  Sender: FDA-Public Use
  Company Number: FR-PFIZER INC-2007042104

PATIENT
  Sex: Female

DRUGS (1)
  1. LYRICA [Suspect]
     Indication: SCIATICA
     Dates: start: 20070101, end: 20070101

REACTIONS (4)
  - EPILEPSY [None]
  - FALL [None]
  - HYPERTENSION [None]
  - MALAISE [None]
